FAERS Safety Report 6685569 (Version 3)
Quarter: 2013Q2

REPORT INFORMATION
  Report Type: Spontaneous
  Country: FR (occurrence: FR)
  Receive Date: 20080627
  Receipt Date: 20130423
  Transmission Date: 20140414
  Serious: Yes (Other)
  Sender: FDA-Public Use
  Company Number: FR-RB-001999-08

PATIENT
  Age: 33 Year
  Sex: Female

DRUGS (3)
  1. SUBUTEX [Suspect]
     Indication: POLYSUBSTANCE DEPENDENCE
     Route: 065
  2. IMPLANON [Suspect]
     Indication: PRODUCT USED FOR UNKNOWN INDICATION
     Dosage: DOSING INFORMATION UNKNOWN
     Route: 065
     Dates: start: 2003, end: 2006
  3. IMPLANON [Suspect]
     Dosage: DOSING INFORMATION UNKNOWN
     Route: 065
     Dates: start: 20060405, end: 20080409

REACTIONS (2)
  - Abortion induced [Recovered/Resolved]
  - Exposure during pregnancy [Recovered/Resolved]
